FAERS Safety Report 11462636 (Version 1)
Quarter: 2015Q3

REPORT INFORMATION
  Report Type: Spontaneous
  Country: US (occurrence: US)
  Receive Date: 20150831
  Receipt Date: 20150831
  Transmission Date: 20151125
  Serious: No
  Sender: FDA-Public Use
  Company Number: US-ELI_LILLY_AND_COMPANY-US201008006077

PATIENT
  Sex: Male
  Weight: 90.25 kg

DRUGS (1)
  1. CYMBALTA [Suspect]
     Active Substance: DULOXETINE HYDROCHLORIDE
     Indication: NEUROPATHY PERIPHERAL
     Dosage: 30 MG, DAILY (1/D)
     Dates: start: 20100729, end: 20100830

REACTIONS (12)
  - Headache [Recovered/Resolved]
  - Vision blurred [Unknown]
  - Negative thoughts [Not Recovered/Not Resolved]
  - Insomnia [Unknown]
  - Decreased appetite [Unknown]
  - Suicidal ideation [Recovered/Resolved]
  - Abdominal pain upper [Unknown]
  - Feeling abnormal [Unknown]
  - Adverse event [Unknown]
  - Tinnitus [Recovered/Resolved]
  - Nightmare [Unknown]
  - Restlessness [Unknown]
